FAERS Safety Report 24613805 (Version 1)
Quarter: 2024Q4

REPORT INFORMATION
  Report Type: Spontaneous
  Country: IT (occurrence: IT)
  Receive Date: 20241113
  Receipt Date: 20241113
  Transmission Date: 20250115
  Serious: Yes (Hospitalization, Other)
  Sender: SANOFI AVENTIS
  Company Number: None

PATIENT
  Weight: 76 kg

DRUGS (3)
  1. OXALIPLATIN [Suspect]
     Active Substance: OXALIPLATIN
     Indication: Gastric cancer
     Dosage: UNK UNK, Q15D (DOSE: 85MG/MQ Q15D)
     Route: 042
     Dates: start: 20240626, end: 20240930
  2. NIVOLUMAB [Suspect]
     Active Substance: NIVOLUMAB
     Indication: Gastric cancer
     Dosage: 240 MG, Q15D
     Route: 042
     Dates: start: 20240716, end: 20240716
  3. FLUOROURACIL [Suspect]
     Active Substance: FLUOROURACIL
     Indication: Gastric cancer
     Dosage: 400 MG/M2, Q15D (400 MG/M2 BOLUS AND 2400 MG/M2 CONTINUOUS INFUSION Q15D)
     Route: 042
     Dates: start: 20240716, end: 20240930

REACTIONS (2)
  - Skin exfoliation [Recovered/Resolved]
  - Immune thrombocytopenia [Recovered/Resolved]

NARRATIVE: CASE EVENT DATE: 20240729
